FAERS Safety Report 7294364-1 (Version None)
Quarter: 2011Q1

REPORT INFORMATION
  Report Type: 
  Country: None (occurrence: None)
  Receive Date: 20110215
  Receipt Date: 20110203
  Transmission Date: 20110831
  Serious: Yes (Hospitalization)
  Sender: FDA-Public Use
  Company Number: JP-AMGEN-JPNCT2011001533

PATIENT
  Age: 73 Year
  Sex: Male
  Weight: 59 kg

DRUGS (17)
  1. OXALIPLATIN [Concomitant]
     Indication: COLORECTAL CANCER
     Dosage: 85 MG/M2, Q2WK
     Route: 041
     Dates: start: 20100818, end: 20101005
  2. FLUOROURACIL [Concomitant]
     Route: 041
     Dates: start: 20101006, end: 20110119
  3. MYSER                              /01249201/ [Concomitant]
     Dosage: UNK
     Route: 062
  4. PANITUMUMAB [Suspect]
     Dosage: 6 MG/KG, Q2WK
     Route: 041
     Dates: start: 20101208
  5. FLUOROURACIL [Concomitant]
     Route: 040
     Dates: start: 20101006, end: 20110119
  6. CALCICOL [Concomitant]
     Dosage: UNK
     Route: 042
  7. MAGNESIUM SULFATE [Concomitant]
     Dosage: UNK
     Route: 042
  8. OXALIPLATIN [Concomitant]
     Route: 041
     Dates: start: 20101006, end: 20110119
  9. PANITUMUMAB [Suspect]
     Indication: COLORECTAL CANCER
     Dosage: 6 MG/KG, Q2WK
     Route: 041
     Dates: start: 20100818, end: 20101102
  10. FLUOROURACIL [Concomitant]
     Indication: COLORECTAL CANCER
     Dosage: 400 MG/M2, Q2WK
     Route: 040
     Dates: start: 20100818, end: 20101005
  11. CALCIUM LEVOFOLINATE [Suspect]
     Indication: COLORECTAL CANCER
     Route: 041
     Dates: start: 20100818
  12. DEXAMETHASONE ACETATE [Concomitant]
     Dosage: UNK
     Route: 042
  13. KERATINAMIN KOWA                   /00481901/ [Concomitant]
     Dosage: UNK
     Route: 062
  14. FLUOROURACIL [Concomitant]
     Dosage: 2400 MG/M2, Q2WK
     Route: 041
     Dates: start: 20100818, end: 20101005
  15. ALOXI [Concomitant]
     Dosage: UNK
     Route: 042
  16. LOCOID                             /00028605/ [Concomitant]
     Dosage: UNK
     Route: 062
  17. DEXALTIN [Concomitant]
     Dosage: UNK
     Route: 049

REACTIONS (4)
  - DEVICE RELATED INFECTION [None]
  - STOMATITIS [None]
  - FEBRILE NEUTROPENIA [None]
  - DERMATITIS ACNEIFORM [None]
